FAERS Safety Report 4292819-5 (Version None)
Quarter: 2004Q1

REPORT INFORMATION
  Report Type: 
  Country: None (occurrence: None)
  Receive Date: 20040212
  Receipt Date: 20030705
  Transmission Date: 20041129
  Serious: No
  Sender: FDA-Public Use
  Company Number: US-GLAXOSMITHKLINE-A0416363A

PATIENT
  Sex: Male

DRUGS (1)
  1. PAXIL [Suspect]

REACTIONS (4)
  - ANOREXIA [None]
  - DIARRHOEA [None]
  - DIZZINESS [None]
  - NAUSEA [None]
